FAERS Safety Report 9307593 (Version 4)
Quarter: 2013Q3

REPORT INFORMATION
  Report Type: Spontaneous
  Country: US (occurrence: US)
  Receive Date: 20130524
  Receipt Date: 20130815
  Transmission Date: 20140515
  Serious: No
  Sender: FDA-Public Use
  Company Number: US-PFIZER INC-2013158441

PATIENT
  Age: 43 Year
  Sex: Male

DRUGS (1)
  1. SUTENT [Suspect]
     Indication: RENAL CANCER
     Dosage: 50 MG, 1X/DAY (4-12.5MG CAPSULES QD X 28 DAYS, OFF FOR 14 DAYS)
     Route: 048
     Dates: start: 20120724

REACTIONS (4)
  - Skin erosion [Recovered/Resolved]
  - Abdominal distension [Unknown]
  - Erythema [Recovered/Resolved]
  - Tooth disorder [Unknown]
